FAERS Safety Report 5857303-3 (Version None)
Quarter: 2008Q3

REPORT INFORMATION
  Report Type: 
  Country: None (occurrence: None)
  Receive Date: 20080822
  Receipt Date: 20080811
  Transmission Date: 20090109
  Serious: No
  Sender: FDA-Public Use
  Company Number: TRP_05853_2008

PATIENT
  Sex: Female

DRUGS (3)
  1. RIBAVIRIN [Suspect]
     Indication: HEPATITIS C VIRUS TEST
     Dosage: (1200 MG ORAL)
     Route: 048
     Dates: start: 20080419
  2. PEGASYS [Suspect]
     Indication: HEPATITIS C VIRUS TEST
     Dosage: (180 UG 1X/WEEK SUBCUTANEOUS)
     Route: 058
     Dates: start: 20080419
  3. SEROQUEL [Concomitant]

REACTIONS (11)
  - ALOPECIA [None]
  - ARTHROPOD BITE [None]
  - CHILLS [None]
  - CRYING [None]
  - DEPRESSION [None]
  - FAECES DISCOLOURED [None]
  - FATIGUE [None]
  - PRODUCTIVE COUGH [None]
  - PYREXIA [None]
  - RASH PRURITIC [None]
  - SELF-INJURIOUS IDEATION [None]
